FAERS Safety Report 19478539 (Version 2)
Quarter: 2021Q3

REPORT INFORMATION
  Report Type: Spontaneous
  Country: US (occurrence: US)
  Receive Date: 20210630
  Receipt Date: 20210711
  Transmission Date: 20211014
  Serious: No
  Sender: FDA-Public Use
  Company Number: US-BAUSCH-BL-2021-019258

PATIENT
  Age: 54 Year
  Sex: Male

DRUGS (1)
  1. WALGREENS EYE ALLERGY RELIEF [Suspect]
     Active Substance: NAPHAZOLINE HYDROCHLORIDE\PHENIRAMINE MALEATE
     Indication: EYE PRURITUS
     Route: 047
     Dates: start: 2020, end: 20210527

REACTIONS (5)
  - Skin burning sensation [Unknown]
  - Lacrimation increased [Unknown]
  - Drug ineffective [Unknown]
  - Eye irritation [Recovered/Resolved]
  - Eye pain [Recovered/Resolved]

NARRATIVE: CASE EVENT DATE: 2020
